FAERS Safety Report 4882849-4 (Version None)
Quarter: 2005Q4

REPORT INFORMATION
  Report Type: 
  Country: None (occurrence: None)
  Receive Date: 20051201
  Receipt Date: 20050923
  Transmission Date: 20060501
  Serious: No
  Sender: FDA-Public Use
  Company Number: 2005PV002540

PATIENT
  Age: 31 Year
  Sex: Female
  Weight: 102.5129 kg

DRUGS (13)
  1. BYETTA [Suspect]
     Indication: DIABETES MELLITUS NON-INSULIN-DEPENDENT
     Dosage: 5 MCG;BID;SC
     Route: 058
     Dates: start: 20050913
  2. TYLENOL (CAPLET) [Concomitant]
  3. NIASPAN ER [Concomitant]
  4. METFORMIN HCL [Concomitant]
  5. ASPIRIN [Concomitant]
  6. MULTIVITAMIN [Concomitant]
  7. GLYBURIDE [Concomitant]
  8. LITHIUM [Concomitant]
  9. ALLEGRA [Concomitant]
  10. RANITIDINE [Concomitant]
  11. LEVOTHYROXINE SODIUM [Concomitant]
  12. GEMBIRBIFL [Concomitant]
  13. CELEBREX [Concomitant]

REACTIONS (2)
  - INJECTION SITE HAEMORRHAGE [None]
  - NAUSEA [None]
